FAERS Safety Report 8609054-X (Version None)
Quarter: 2012Q3

REPORT INFORMATION
  Report Type: 
  Country: None (occurrence: None)
  Receive Date: 20120821
  Receipt Date: 19900824
  Transmission Date: 20120928
  Serious: Yes (Death, Other)
  Sender: FDA-Public Use
  Company Number: US-ROCHE-1098729

PATIENT
  Age: 50 Year
  Sex: Male

DRUGS (9)
  1. NITROGLYCERIN [Concomitant]
  2. HEPARIN [Concomitant]
  3. MONOCID [Concomitant]
     Route: 042
  4. ASPIRIN [Concomitant]
  5. PROVENTIL [Concomitant]
  6. DOBUTREX [Concomitant]
  7. LIDOCAINE [Concomitant]
  8. ACTIVASE [Suspect]
     Indication: PRODUCT USED FOR UNKNOWN INDICATION
  9. ASPIRIN [Concomitant]

REACTIONS (7)
  - CARDIAC ARREST [None]
  - CARDIAC FAILURE [None]
  - ELECTROCARDIOGRAM Q WAVES [None]
  - SINUS TACHYCARDIA [None]
  - ELECTROCARDIOGRAM ST SEGMENT ELEVATION [None]
  - PULMONARY OEDEMA [None]
  - PAIN [None]
